FAERS Safety Report 5051270-0 (Version None)
Quarter: 2006Q3

REPORT INFORMATION
  Report Type: 
  Country: None (occurrence: None)
  Receive Date: 20060714
  Receipt Date: 20060704
  Transmission Date: 20061208
  Serious: Yes (Life-Threatening, Other)
  Sender: FDA-Public Use
  Company Number: BR-JNJFOC-20060701399

PATIENT
  Age: 44 Year
  Sex: Female
  Weight: 60 kg

DRUGS (7)
  1. TOPAMAX [Suspect]
     Route: 048
  2. TOPAMAX [Suspect]
     Indication: MOOD ALTERED
     Route: 048
  3. PAROXETINE HCL [Concomitant]
     Indication: MOOD ALTERED
     Route: 048
  4. RIVOTRIL [Concomitant]
     Indication: INSOMNIA
     Route: 048
  5. RIVOTRIL [Concomitant]
     Indication: ANXIETY
     Route: 048
  6. TOFRANIL [Concomitant]
     Indication: DEPRESSION
     Route: 048
  7. TOFRANIL [Concomitant]
     Indication: MOOD ALTERED
     Route: 048

REACTIONS (2)
  - AGGRESSION [None]
  - HOMICIDAL IDEATION [None]
